FAERS Safety Report 7033094-8 (Version None)
Quarter: 2010Q4

REPORT INFORMATION
  Report Type: 
  Country: None (occurrence: None)
  Receive Date: 20101004
  Receipt Date: 20100921
  Transmission Date: 20110411
  Serious: Yes (Disabling)
  Sender: FDA-Public Use
  Company Number: 2010MA002869

PATIENT
  Age: 79 Year
  Sex: Female

DRUGS (3)
  1. RAMIPRIL [Suspect]
     Indication: CARDIAC FAILURE
     Dosage: 1.25 MG;BID;PO
     Route: 048
     Dates: start: 20100607, end: 20100908
  2. DICILLIN [Concomitant]
  3. PREV MEDS [Concomitant]

REACTIONS (5)
  - AZOTAEMIA [None]
  - BLOOD CREATININE INCREASED [None]
  - DECREASED APPETITE [None]
  - PERIPHERAL ISCHAEMIA [None]
  - WOUND INFECTION [None]
